FAERS Safety Report 7543000-5 (Version None)
Quarter: 2011Q2

REPORT INFORMATION
  Report Type: 
  Country: None (occurrence: None)
  Receive Date: 20110613
  Receipt Date: 20110531
  Transmission Date: 20111010
  Serious: Yes (Other)
  Sender: FDA-Public Use
  Company Number: PHHY2011BR48050

PATIENT
  Sex: Male
  Weight: 86 kg

DRUGS (2)
  1. ECTUS [Concomitant]
     Indication: HYPERTENSION
     Dosage: 0.5 DF, BID, (HALF A TABLET TWICE A DAY)
     Route: 048
  2. EXFORGE [Suspect]
     Indication: HYPERTENSION
     Dosage: VALSARTAN 320MG AND AMLODIPINE 5MG, 1 TABLET A DAY
     Route: 048

REACTIONS (3)
  - BONE PAIN [None]
  - INGUINAL HERNIA [None]
  - GAIT DISTURBANCE [None]
